FAERS Safety Report 20189921 (Version 4)
Quarter: 2022Q1

REPORT INFORMATION
  Report Type: Spontaneous
  Country: US (occurrence: US)
  Receive Date: 20211215
  Receipt Date: 20220121
  Transmission Date: 20220424
  Serious: Yes (Hospitalization, Other)
  Sender: FDA-Public Use
  Company Number: US-PFIZER INC-202101712859

PATIENT
  Age: 68 Year
  Sex: Male
  Weight: 74.83 kg

DRUGS (9)
  1. XELJANZ XR [Suspect]
     Active Substance: TOFACITINIB CITRATE
     Indication: Psoriatic arthropathy
     Dosage: 11 MG, 1X/DAY (ONE TIME A DAY)
     Dates: start: 202110, end: 202111
  2. XELJANZ XR [Suspect]
     Active Substance: TOFACITINIB CITRATE
     Dosage: 11 MG, 1X/DAY
     Dates: start: 202110, end: 202111
  3. XELJANZ XR [Suspect]
     Active Substance: TOFACITINIB CITRATE
     Dosage: 11 MG (6 DAY)
     Route: 048
     Dates: start: 20210615, end: 20211108
  4. ADVIL [Suspect]
     Active Substance: IBUPROFEN
     Indication: Arthritis
     Dosage: 220 MG, AS NEEDED (ONE A DAY AS NEEDED)
     Dates: end: 202111
  5. ASPIRIN [Suspect]
     Active Substance: ASPIRIN
     Indication: Arthritis
     Dosage: 325 MG, AS NEEDED
     Dates: end: 202111
  6. ASPIRIN [Suspect]
     Active Substance: ASPIRIN
     Indication: Pain
  7. NAPROXEN SODIUM [Suspect]
     Active Substance: NAPROXEN SODIUM
     Indication: Arthritis
     Dosage: 550 MG, 2X/DAY (TWICE A DAY)
     Dates: end: 202111
  8. NAPROXEN SODIUM [Suspect]
     Active Substance: NAPROXEN SODIUM
     Indication: Pain
  9. DEXAMETHASONE [Suspect]
     Active Substance: DEXAMETHASONE
     Indication: Pain
     Dosage: 4 MG, DAILY (1/2 A PILL A DAY RIGHT NOW AS NEEDED, EVERY DAY)

REACTIONS (4)
  - Renal impairment [Not Recovered/Not Resolved]
  - Myalgia [Not Recovered/Not Resolved]
  - Feeling abnormal [Unknown]
  - Weight decreased [Unknown]

NARRATIVE: CASE EVENT DATE: 20210601
